FAERS Safety Report 5275348-1 (Version None)
Quarter: 2007Q1

REPORT INFORMATION
  Report Type: 
  Country: None (occurrence: None)
  Receive Date: 20061213
  Receipt Date: 20050830
  Transmission Date: 20070707
  Serious: Yes (Hospitalization)
  Sender: FDA-Public Use
  Company Number: 2005UW12895

PATIENT
  Age: 37 Year
  Sex: Male

DRUGS (4)
  1. SEROQUEL [Suspect]
  2. SEROQUEL [Suspect]
     Dosage: 600 MG DAILY PO
     Route: 048
     Dates: start: 20050715
  3. DEPAKOTE [Concomitant]
  4. CLONOPIN [Concomitant]

REACTIONS (1)
  - PRIAPISM [None]
